FAERS Safety Report 10303398 (Version 2)
Quarter: 2014Q3

REPORT INFORMATION
  Report Type: Spontaneous
  Country: BR (occurrence: BR)
  Receive Date: 20140714
  Receipt Date: 20140828
  Transmission Date: 20150326
  Serious: Yes (Hospitalization, Other)
  Sender: FDA-Public Use
  Company Number: BR-PFIZER INC-2014193869

PATIENT
  Age: 54 Year
  Sex: Male
  Weight: 81 kg

DRUGS (8)
  1. ENALAPRIL [Concomitant]
     Active Substance: ENALAPRIL
     Dosage: 2 TABLETS OR CAPSULES OF 2.5, DAILY
  2. CHAMPIX [Suspect]
     Active Substance: VARENICLINE TARTRATE
     Indication: SMOKING CESSATION THERAPY
     Dosage: UNK
     Dates: start: 2009
  3. EXODUS [Concomitant]
     Active Substance: ESCITALOPRAM OXALATE
  4. ATENOLOL. [Concomitant]
     Active Substance: ATENOLOL
     Dosage: 2 TABLETS OR CAPSULES OF 25 MG (50 MG), DAILY
  5. CHAMPIX [Suspect]
     Active Substance: VARENICLINE TARTRATE
     Dosage: UNK
     Dates: start: 201407
  6. RIVOTRIL [Concomitant]
     Active Substance: CLONAZEPAM
  7. ASPIRINA PREVENT [Concomitant]
     Active Substance: ASPIRIN
     Dosage: 2 TABLETS OR CAPSULES OF 100 MG (200 MG), DAILY
  8. LIPITOR [Suspect]
     Active Substance: ATORVASTATIN CALCIUM
     Dosage: 20 MG, UNK
     Dates: start: 2006

REACTIONS (2)
  - Cardiac disorder [Unknown]
  - Infarction [Unknown]

NARRATIVE: CASE EVENT DATE: 20140614
